FAERS Safety Report 14542638 (Version 1)
Quarter: 2018Q1

REPORT INFORMATION
  Report Type: Spontaneous
  Country: US (occurrence: US)
  Receive Date: 20180216
  Receipt Date: 20180216
  Transmission Date: 20180509
  Serious: Yes (Other)
  Sender: FDA-Public Use
  Company Number: US-OTSUKA-DJ201402939

PATIENT
  Sex: Male
  Weight: 70.29 kg

DRUGS (2)
  1. ABILIFY [Suspect]
     Active Substance: ARIPIPRAZOLE
     Indication: BIPOLAR DISORDER
     Dosage: 15 MG, UNK
     Route: 048
  2. LAMOTRIGINE. [Concomitant]
     Active Substance: LAMOTRIGINE
     Indication: PRODUCT USED FOR UNKNOWN INDICATION
     Dosage: 200 MG, UNK
     Route: 065

REACTIONS (8)
  - Nightmare [Unknown]
  - Psychotic disorder [Unknown]
  - Wrong technique in product usage process [Unknown]
  - Aggression [Unknown]
  - Irritability [Unknown]
  - Abnormal dreams [Unknown]
  - Mania [Unknown]
  - Malaise [Unknown]
